FAERS Safety Report 9116505 (Version 1)
Quarter: 2013Q1

REPORT INFORMATION
  Report Type: Spontaneous
  Country: JP (occurrence: JP)
  Receive Date: 20130225
  Receipt Date: 20130225
  Transmission Date: 20140127
  Serious: Yes (Other)
  Sender: FDA-Public Use
  Company Number: PHHY2013JP017166

PATIENT
  Age: 48 Year
  Sex: Female

DRUGS (3)
  1. GOSERELIN ACETATE [Suspect]
     Indication: BREAST CANCER
     Dosage: 1 DF, QMO
     Route: 058
  2. LEUPRORELIN ACETATE [Suspect]
     Indication: BREAST CANCER
  3. TAMOXIFEN CITRATE [Concomitant]
     Indication: BREAST CANCER
     Route: 048

REACTIONS (9)
  - Recall phenomenon [Unknown]
  - Drug eruption [Recovered/Resolved]
  - Pigmentation disorder [Recovered/Resolved]
  - Papule [Recovered/Resolved]
  - Erythema [Recovered/Resolved]
  - Skin erosion [Recovered/Resolved]
  - Eczema [Recovered/Resolved]
  - Rash pruritic [Recovered/Resolved]
  - Rash maculo-papular [Recovered/Resolved]
